FAERS Safety Report 5196900-8 (Version None)
Quarter: 2007Q1

REPORT INFORMATION
  Report Type: 
  Country: None (occurrence: None)
  Receive Date: 20070103
  Receipt Date: 20061222
  Transmission Date: 20070707
  Serious: Yes (Hospitalization, Other)
  Sender: FDA-Public Use
  Company Number: PHBS2006BE05377

PATIENT
  Age: 32 Year
  Sex: Female

DRUGS (7)
  1. LIORESAL [Suspect]
     Dosage: 2.5 MG/DAY
     Route: 048
     Dates: start: 20060317, end: 20060323
  2. LIORESAL [Suspect]
     Dosage: 10 MG/DAY
     Route: 048
     Dates: start: 20060324, end: 20060406
  3. LIORESAL [Suspect]
     Dosage: 7.5 MG/DAY
     Route: 048
     Dates: start: 20060407, end: 20060407
  4. LIORESAL [Suspect]
     Dosage: 2.5 MG/DAY
     Route: 048
     Dates: start: 20060408
  5. PANTOPRAZOLE SODIUM [Concomitant]
     Dates: start: 20050701
  6. REMERGON [Concomitant]
     Dosage: UNK, UNK
  7. REMERGON [Concomitant]
     Dosage: 2.75 MG/DAY

REACTIONS (40)
  - ACTIVITIES OF DAILY LIVING IMPAIRED [None]
  - AGGRESSION [None]
  - ANGER [None]
  - ANXIETY [None]
  - ASTHENIA [None]
  - AUTONOMIC NERVOUS SYSTEM IMBALANCE [None]
  - BLOOD PRESSURE INCREASED [None]
  - BURNING SENSATION [None]
  - CHEST DISCOMFORT [None]
  - CHILLS [None]
  - DEPRESSED MOOD [None]
  - DEPRESSION [None]
  - DRUG WITHDRAWAL SYNDROME [None]
  - DYSPNOEA [None]
  - FATIGUE [None]
  - FEELING ABNORMAL [None]
  - FEELING COLD [None]
  - FIBROMYALGIA [None]
  - HEART RATE INCREASED [None]
  - HEART RATE IRREGULAR [None]
  - HYPERHIDROSIS [None]
  - HYPOTONIA [None]
  - ILL-DEFINED DISORDER [None]
  - INSOMNIA [None]
  - LOSS OF CONSCIOUSNESS [None]
  - MUSCLE SPASMS [None]
  - MYALGIA [None]
  - MYOCLONUS [None]
  - PANIC ATTACK [None]
  - PARAESTHESIA [None]
  - PERSONALITY CHANGE [None]
  - POLLAKIURIA [None]
  - POOR QUALITY SLEEP [None]
  - POST-TRAUMATIC STRESS DISORDER [None]
  - RAPID EYE MOVEMENTS SLEEP ABNORMAL [None]
  - SENSE OF OPPRESSION [None]
  - SOCIAL AVOIDANT BEHAVIOUR [None]
  - TENDONITIS [None]
  - THIRST [None]
  - VOMITING [None]
